FAERS Safety Report 7283613-1 (Version None)
Quarter: 2011Q1

REPORT INFORMATION
  Report Type: 
  Country: None (occurrence: None)
  Receive Date: 20110209
  Receipt Date: 20110201
  Transmission Date: 20110831
  Serious: Yes (Life-Threatening)
  Sender: FDA-Public Use
  Company Number: B0697257A

PATIENT
  Sex: Male

DRUGS (11)
  1. PREVISCAN [Suspect]
     Indication: PULMONARY EMBOLISM
     Route: 048
     Dates: start: 20101222, end: 20101229
  2. LOXEN [Concomitant]
     Route: 065
  3. SPIRIVA [Concomitant]
     Route: 065
  4. ASPIRIN [Concomitant]
     Route: 065
  5. VADILEX [Concomitant]
     Route: 065
  6. ROVAMYCINE [Suspect]
     Dosage: 1TAB TWICE PER DAY
     Route: 048
     Dates: start: 20101215, end: 20101229
  7. SERETIDE [Concomitant]
     Route: 065
  8. LISINOPRIL [Concomitant]
     Route: 065
  9. FUROSEMIDE [Concomitant]
     Route: 065
  10. ARIXTRA [Suspect]
     Indication: PULMONARY EMBOLISM
     Dosage: 7.5MG PER DAY
     Route: 058
     Dates: start: 20101220, end: 20101224
  11. AUGMENTIN [Suspect]
     Dosage: 3G PER DAY
     Route: 048
     Dates: start: 20101215, end: 20101229

REACTIONS (7)
  - HAEMOGLOBIN DECREASED [None]
  - MUSCLE HAEMORRHAGE [None]
  - SHOCK HAEMORRHAGIC [None]
  - RENAL FAILURE ACUTE [None]
  - CIRCULATORY COLLAPSE [None]
  - DRUG INTERACTION [None]
  - INTERNATIONAL NORMALISED RATIO INCREASED [None]
